FAERS Safety Report 13702272 (Version 1)
Quarter: 2017Q2

REPORT INFORMATION
  Report Type: Spontaneous
  Country: US (occurrence: US)
  Receive Date: 20170629
  Receipt Date: 20170629
  Transmission Date: 20170830
  Serious: No
  Sender: FDA-Public Use
  Company Number: US-GLAXOSMITHKLINE-US2017099747

PATIENT
  Sex: Female

DRUGS (7)
  1. DOXYCYCLINE. [Concomitant]
     Active Substance: DOXYCYCLINE
  2. SYNTHROID [Concomitant]
     Active Substance: LEVOTHYROXINE SODIUM
  3. VITAMIN B12 [Concomitant]
     Active Substance: CYANOCOBALAMIN
  4. BENLYSTA [Suspect]
     Active Substance: BELIMUMAB
     Indication: SYSTEMIC LUPUS ERYTHEMATOSUS
     Dosage: UNK UNK, Z
     Route: 042
     Dates: start: 2015, end: 2016
  5. PLAQUENIL [Concomitant]
     Active Substance: HYDROXYCHLOROQUINE SULFATE
  6. BIOTIN [Concomitant]
     Active Substance: BIOTIN
  7. VITAMIN D3 [Concomitant]
     Active Substance: CHOLECALCIFEROL

REACTIONS (8)
  - Infusion site swelling [Unknown]
  - Peripheral swelling [Recovered/Resolved]
  - Infusion site pain [Unknown]
  - Vein collapse [Not Recovered/Not Resolved]
  - Injection site indentation [Not Recovered/Not Resolved]
  - Inflammation [Recovered/Resolved]
  - Infusion site erythema [Unknown]
  - Erythema [Recovered/Resolved]
